FAERS Safety Report 9420045 (Version 1)
Quarter: 2013Q3

REPORT INFORMATION
  Report Type: Spontaneous
  Country: US (occurrence: None)
  Receive Date: 20130724
  Receipt Date: 20130724
  Transmission Date: 20140515
  Serious: Yes (Hospitalization)
  Sender: FDA-Public Use
  Company Number: None

PATIENT
  Age: 88 Year
  Sex: Female
  Weight: 44.45 kg

DRUGS (1)
  1. SCOPOLAMINE [Suspect]
     Indication: VERTIGO
     Dosage: 1.5 MG EVERY 72 HOURS TRANSDERMAL
     Route: 062
     Dates: start: 20130401, end: 20130404

REACTIONS (2)
  - Confusional state [None]
  - Mental status changes [None]
